FAERS Safety Report 4478976-6 (Version None)
Quarter: 2004Q4

REPORT INFORMATION
  Report Type: 
  Country: None (occurrence: None)
  Receive Date: 20041015
  Receipt Date: 20040928
  Transmission Date: 20050328
  Serious: Yes (Hospitalization, Other)
  Sender: FDA-Public Use
  Company Number: FR9109415JUL2002

PATIENT
  Age: 65 Year
  Sex: Female

DRUGS (10)
  1. EFFEXOR [Suspect]
     Indication: DEPRESSION
     Dosage: 50 MG 2X PER 1 DAY
     Route: 048
     Dates: start: 20020515, end: 20020607
  2. EFFEXOR [Suspect]
     Indication: DEPRESSION
     Dosage: 50 MG 2X PER 1 DAY
     Route: 048
     Dates: start: 20020601
  3. TOPALGIC (TRAMADOL HYDROCHLORIDE, , 0) [Suspect]
     Indication: PAIN
     Dosage: SEE IMAGE
     Route: 048
     Dates: start: 20020604, end: 20020607
  4. TOPALGIC (TRAMADOL HYDROCHLORIDE, , 0) [Suspect]
     Indication: RIB FRACTURE
     Dosage: SEE IMAGE
     Route: 048
     Dates: start: 20020604, end: 20020607
  5. TOPALGIC (TRAMADOL HYDROCHLORIDE, , 0) [Suspect]
     Indication: PAIN
     Dosage: SEE IMAGE
     Route: 048
     Dates: start: 20020608, end: 20020610
  6. TOPALGIC (TRAMADOL HYDROCHLORIDE, , 0) [Suspect]
     Indication: RIB FRACTURE
     Dosage: SEE IMAGE
     Route: 048
     Dates: start: 20020608, end: 20020610
  7. LEVOTHYROXINE SODIUM [Concomitant]
  8. HYDROCORTISONE [Concomitant]
  9. DI-ANTALVIC (DEXTROPROPOXYPHENE HYDROCHLORIDE/PARACETAMOL) [Concomitant]
  10. ACUPAN [Concomitant]

REACTIONS (14)
  - AGITATION [None]
  - BLOOD CREATINE PHOSPHOKINASE INCREASED [None]
  - CONFUSIONAL STATE [None]
  - DIARRHOEA [None]
  - DISORIENTATION [None]
  - DRUG INTERACTION [None]
  - EOSINOPHIL COUNT INCREASED [None]
  - FALL [None]
  - INFLAMMATION [None]
  - LOGORRHOEA [None]
  - PYREXIA [None]
  - RIB FRACTURE [None]
  - SEROTONIN SYNDROME [None]
  - WHITE BLOOD CELL COUNT INCREASED [None]
